FAERS Safety Report 13616090 (Version 3)
Quarter: 2017Q2

REPORT INFORMATION
  Report Type: Report from Study
  Country: US (occurrence: US)
  Receive Date: 20170606
  Receipt Date: 20170622
  Transmission Date: 20170830
  Serious: Yes (Hospitalization, Other)
  Sender: FDA-Public Use
  Company Number: US-GILEAD-2017-0275691

PATIENT
  Age: 73 Year
  Sex: Female

DRUGS (1)
  1. RANOLAZINE. [Suspect]
     Active Substance: RANOLAZINE
     Indication: ANGINA PECTORIS
     Dosage: 500 MG, UNK
     Route: 048
     Dates: start: 20140914

REACTIONS (5)
  - Myocardial infarction [Unknown]
  - Implantable defibrillator insertion [Unknown]
  - Memory impairment [Not Recovered/Not Resolved]
  - Coronary artery bypass [Unknown]
  - Ejection fraction decreased [Not Recovered/Not Resolved]
